FAERS Safety Report 13711180 (Version 1)
Quarter: 2017Q3

REPORT INFORMATION
  Report Type: Spontaneous
  Country: DE (occurrence: DE)
  Receive Date: 20170703
  Receipt Date: 20170703
  Transmission Date: 20171127
  Serious: Yes (Hospitalization)
  Sender: FDA-Public Use
  Company Number: DE-UCBSA-2017025083

PATIENT
  Age: 47 Year
  Sex: Female

DRUGS (6)
  1. VIMPAT [Suspect]
     Active Substance: LACOSAMIDE
     Indication: PRODUCT USED FOR UNKNOWN INDICATION
     Dosage: 100 MG, TOTAL (1 TABL. /MIX-UP)
     Route: 048
     Dates: start: 20170626, end: 20170626
  2. ORFIRIL [Suspect]
     Active Substance: VALPROIC ACID
     Indication: PRODUCT USED FOR UNKNOWN INDICATION
     Dosage: UNK
  3. TIMOX [Suspect]
     Active Substance: OXCARBAZEPINE
     Dosage: 300 MG, TOTAL
     Route: 048
     Dates: start: 20170626, end: 20170626
  4. ORFIRIL [Suspect]
     Active Substance: VALPROIC ACID
     Dosage: 600 MG, TOTAL
     Route: 048
     Dates: start: 20170626, end: 20170626
  5. LAMICTAL [Suspect]
     Active Substance: LAMOTRIGINE
     Indication: PRODUCT USED FOR UNKNOWN INDICATION
     Dosage: 70 MG, TOTAL (1 TABL. / MIX-UP)
     Route: 048
     Dates: start: 20170626, end: 20170626
  6. TIMOX [Suspect]
     Active Substance: OXCARBAZEPINE
     Indication: PRODUCT USED FOR UNKNOWN INDICATION
     Dosage: UNK

REACTIONS (4)
  - Somnolence [Unknown]
  - Accidental exposure to product [Unknown]
  - Vomiting [Unknown]
  - Nausea [Unknown]

NARRATIVE: CASE EVENT DATE: 20170626
